FAERS Safety Report 19182988 (Version 2)
Quarter: 2021Q2

REPORT INFORMATION
  Report Type: Spontaneous
  Country: JP (occurrence: JP)
  Receive Date: 20210426
  Receipt Date: 20210430
  Transmission Date: 20210717
  Serious: Yes (Hospitalization)
  Sender: FDA-Public Use
  Company Number: JP-TAKEDA-2021TJP018527

PATIENT
  Age: 6 Decade
  Sex: Male

DRUGS (6)
  1. TRINTELLIX [Suspect]
     Active Substance: VORTIOXETINE HYDROBROMIDE
     Indication: DEPRESSIVE SYMPTOM
     Dosage: 10 MILLIGRAM
     Route: 048
  2. JZOLOFT [Concomitant]
     Active Substance: SERTRALINE HYDROCHLORIDE
     Dosage: UNK
  3. SOLANAX [Concomitant]
     Active Substance: ALPRAZOLAM
     Dosage: 2.4 MILLIGRAM
     Route: 048
  4. LUNESTA [Concomitant]
     Active Substance: ESZOPICLONE
     Dosage: UNK
     Route: 048
  5. TRINTELLIX [Suspect]
     Active Substance: VORTIOXETINE HYDROBROMIDE
     Dosage: 20 MILLIGRAM
     Route: 048
  6. JZOLOFT [Concomitant]
     Active Substance: SERTRALINE HYDROCHLORIDE
     Dosage: 75 MILLIGRAM
     Route: 048

REACTIONS (1)
  - Bradykinesia [Recovered/Resolved]
